FAERS Safety Report 5049891-4 (Version None)
Quarter: 2006Q2

REPORT INFORMATION
  Report Type: 
  Country: None (occurrence: None)
  Receive Date: 20060614
  Receipt Date: 20060321
  Transmission Date: 20061013
  Serious: Yes (Other)
  Sender: FDA-Public Use
  Company Number: 441558

PATIENT
  Sex: Female

DRUGS (1)
  1. BONIVA [Suspect]
     Dates: start: 20050615

REACTIONS (7)
  - BACK PAIN [None]
  - BRONCHITIS [None]
  - COUGH [None]
  - DYSPHAGIA [None]
  - FATIGUE [None]
  - INFLAMMATION [None]
  - TRACHEAL PAIN [None]
